FAERS Safety Report 20779083 (Version 1)
Quarter: 2022Q2

REPORT INFORMATION
  Report Type: Spontaneous
  Country: US (occurrence: US)
  Receive Date: 20220503
  Receipt Date: 20220503
  Transmission Date: 20220721
  Serious: No
  Sender: FDA-Public Use
  Company Number: US-PFIZER INC-202200622785

PATIENT
  Age: 74 Year
  Sex: Female
  Weight: 52.16 kg

DRUGS (1)
  1. PAXLOVID [Suspect]
     Active Substance: NIRMATRELVIR\RITONAVIR
     Indication: COVID-19 treatment
     Dosage: [PF-07321332 300 MG]/[RITONAVIR 100 MG]; 2X/DAY
     Route: 048
     Dates: start: 20220422

REACTIONS (9)
  - Hyperhidrosis [Unknown]
  - Night sweats [Unknown]
  - Taste disorder [Not Recovered/Not Resolved]
  - Nausea [Unknown]
  - Diarrhoea [Not Recovered/Not Resolved]
  - Decreased appetite [Unknown]
  - Insomnia [Unknown]
  - Myalgia [Unknown]
  - Back disorder [Unknown]

NARRATIVE: CASE EVENT DATE: 20220422
